FAERS Safety Report 8489406-1 (Version None)
Quarter: 2012Q3

REPORT INFORMATION
  Report Type: 
  Country: None (occurrence: None)
  Receive Date: 20120705
  Receipt Date: 20120625
  Transmission Date: 20120928
  Serious: Yes (Hospitalization)
  Sender: FDA-Public Use
  Company Number: US-ELI_LILLY_AND_COMPANY-US201201001791

PATIENT
  Sex: Female

DRUGS (2)
  1. FORTEO [Suspect]
     Dosage: 20 UG, QD
     Route: 058
     Dates: start: 20120102
  2. FORTEO [Suspect]
     Indication: OSTEOPOROSIS
     Dosage: 20 UG, QD
     Route: 058

REACTIONS (9)
  - VOMITING [None]
  - WRONG TECHNIQUE IN DRUG USAGE PROCESS [None]
  - GASTROINTESTINAL INFECTION [None]
  - DRUG DOSE OMISSION [None]
  - MALAISE [None]
  - ASTHMA [None]
  - DYSPNOEA [None]
  - DIARRHOEA [None]
  - BRONCHIAL SECRETION RETENTION [None]
